FAERS Safety Report 5370943-3 (Version None)
Quarter: 2007Q2

REPORT INFORMATION
  Report Type: 
  Country: None (occurrence: None)
  Receive Date: 20070626
  Receipt Date: 20070620
  Transmission Date: 20071010
  Serious: Yes (Life-Threatening, Hospitalization, Other)
  Sender: FDA-Public Use
  Company Number: GB-PFIZER INC-2007048846

PATIENT
  Age: 87 Year
  Sex: Female

DRUGS (3)
  1. SPIRONOLACTONE [Suspect]
     Route: 048
  2. FUROSEMIDE [Interacting]
     Route: 048
  3. OLMESARTAN MEDOXOMIL [Interacting]
     Route: 048

REACTIONS (4)
  - DEHYDRATION [None]
  - DRUG INTERACTION [None]
  - HYPERKALAEMIA [None]
  - RENAL FAILURE ACUTE [None]
